FAERS Safety Report 7340786-X (Version None)
Quarter: 2011Q1

REPORT INFORMATION
  Report Type: 
  Country: None (occurrence: None)
  Receive Date: 20110309
  Receipt Date: 20110301
  Transmission Date: 20110831
  Serious: Yes (Other)
  Sender: FDA-Public Use
  Company Number: AT-MEDIMMUNE-MEDI-0012771

PATIENT
  Sex: Female

DRUGS (4)
  1. SYNAGIS [Suspect]
     Route: 030
     Dates: start: 20101220, end: 20101220
  2. SYNAGIS [Suspect]
     Route: 030
     Dates: start: 20101119, end: 20101119
  3. SYNAGIS [Suspect]
     Route: 030
     Dates: start: 20110221
  4. SYNAGIS [Suspect]
     Route: 030
     Dates: start: 20110120, end: 20110120

REACTIONS (3)
  - BRONCHITIS [None]
  - DRUG INEFFECTIVE [None]
  - RESPIRATORY SYNCYTIAL VIRUS TEST POSITIVE [None]
